FAERS Safety Report 10315065 (Version 2)
Quarter: 2014Q3

REPORT INFORMATION
  Report Type: Spontaneous
  Country: US (occurrence: US)
  Receive Date: 20140719
  Receipt Date: 20140731
  Transmission Date: 20150326
  Serious: Yes (Other)
  Sender: FDA-Public Use
  Company Number: US-MERCK-1407USA006926

PATIENT
  Sex: Female

DRUGS (2)
  1. INTRON A [Suspect]
     Active Substance: INTERFERON ALFA-2B
     Dosage: UNK
     Dates: start: 201401
  2. INTRON A [Suspect]
     Active Substance: INTERFERON ALFA-2B
     Dosage: 20 MILLION IU,TID ON MONDAY, WEDNESDAY AND FRIDAY
     Route: 051
     Dates: start: 20131218, end: 20140709

REACTIONS (3)
  - Drug ineffective [Unknown]
  - Neoplasm progression [Unknown]
  - Lymph nodes scan abnormal [Unknown]

NARRATIVE: CASE EVENT DATE: 2014
